FAERS Safety Report 19083556 (Version 1)
Quarter: 2021Q2

REPORT INFORMATION
  Report Type: Report from Study
  Country: US (occurrence: US)
  Receive Date: 20210401
  Receipt Date: 20210401
  Transmission Date: 20210717
  Serious: No
  Sender: FDA-Public Use
  Company Number: US-BIOVITRUM-2021US2732

PATIENT
  Age: 61 Year
  Sex: Male

DRUGS (2)
  1. KINERET [Suspect]
     Active Substance: ANAKINRA
     Indication: RHEUMATOID ARTHRITIS
     Route: 058
     Dates: start: 20210227
  2. KINERET [Suspect]
     Active Substance: ANAKINRA
     Indication: ACUTE MYELOID LEUKAEMIA
     Route: 058
     Dates: start: 20210225

REACTIONS (5)
  - Injection site pruritus [Unknown]
  - Injection site rash [Unknown]
  - Pain in extremity [Unknown]
  - Injection site warmth [Unknown]
  - Off label use [Not Recovered/Not Resolved]

NARRATIVE: CASE EVENT DATE: 20210225
